FAERS Safety Report 19978739 (Version 1)
Quarter: 2021Q4

REPORT INFORMATION
  Report Type: Spontaneous
  Country: US (occurrence: US)
  Receive Date: 20211019
  Receipt Date: 20211019
  Transmission Date: 20220303
  Serious: Yes (Hospitalization)
  Sender: FDA-Public Use
  Company Number: None

PATIENT
  Sex: Male

DRUGS (1)
  1. INLYTA [Suspect]
     Active Substance: AXITINIB
     Indication: Renal cancer
     Dosage: TAKE 1 TABLET BY MOUTH EVERY 12 (TWELVE) HOURS
     Route: 048
     Dates: start: 20210330, end: 202109

REACTIONS (1)
  - Illness [None]
